FAERS Safety Report 4332513-5 (Version None)
Quarter: 2004Q2

REPORT INFORMATION
  Report Type: 
  Country: None (occurrence: None)
  Receive Date: 20040401
  Receipt Date: 20040326
  Transmission Date: 20050107
  Serious: Yes (Hospitalization)
  Sender: FDA-Public Use
  Company Number: 200403572

PATIENT
  Age: 14 Year
  Sex: Female
  Weight: 34 kg

DRUGS (1)
  1. ACETAMINOPHEN [Suspect]

REACTIONS (2)
  - HEPATIC ENZYME INCREASED [None]
  - SUICIDE ATTEMPT [None]
